FAERS Safety Report 22303781 (Version 2)
Quarter: 2023Q2

REPORT INFORMATION
  Report Type: Spontaneous
  Country: US (occurrence: US)
  Receive Date: 20230510
  Receipt Date: 20230608
  Transmission Date: 20230721
  Serious: Yes (Hospitalization)
  Sender: FDA-Public Use
  Company Number: US-INCYTE CORPORATION-2023IN004601

PATIENT

DRUGS (2)
  1. JAKAFI [Suspect]
     Active Substance: RUXOLITINIB
     Indication: Polycythaemia vera
     Dosage: 15 MILLIGRAM, QD
     Route: 048
     Dates: start: 2022
  2. JAKAFI [Suspect]
     Active Substance: RUXOLITINIB
     Dosage: 15 MILLIGRAM, QD
     Route: 048
     Dates: start: 20230503

REACTIONS (4)
  - COVID-19 [Unknown]
  - Product dose omission issue [Unknown]
  - Platelet count decreased [Unknown]
  - Petechiae [Unknown]

NARRATIVE: CASE EVENT DATE: 20230501
